FAERS Safety Report 10622721 (Version 1)
Quarter: 2014Q4

REPORT INFORMATION
  Report Type: Spontaneous
  Country: US (occurrence: None)
  Receive Date: 20141202
  Receipt Date: 20141202
  Transmission Date: 20150529
  Serious: Yes (Hospitalization)
  Sender: FDA-Public Use
  Company Number: None

PATIENT
  Age: 48 Year
  Sex: Female
  Weight: 86.18 kg

DRUGS (2)
  1. CARVEDILOL. [Suspect]
     Active Substance: CARVEDILOL
     Indication: CARDIOMYOPATHY
     Dosage: 2 PILLS
     Route: 048
     Dates: start: 20140326
  2. CARVEDILOL. [Suspect]
     Active Substance: CARVEDILOL
     Indication: TACHYCARDIA
     Dosage: 2 PILLS
     Route: 048
     Dates: start: 20140326

REACTIONS (6)
  - Condition aggravated [None]
  - Dizziness [None]
  - Heart rate increased [None]
  - Product quality issue [None]
  - Product substitution issue [None]
  - Ventricular extrasystoles [None]
